FAERS Safety Report 8795112 (Version 2)
Quarter: 2012Q4

REPORT INFORMATION
  Report Type: 
  Country: US (occurrence: US)
  Receive Date: 20120917
  Receipt Date: 20121112
  Transmission Date: 20130627
  Serious: Yes (Hospitalization)
  Sender: FDA-Public Use
  Company Number: US-SHIRE-ALL1-2012-04234

PATIENT
  Age: 0 Year
  Sex: Male
  Weight: 8.5 kg

DRUGS (3)
  1. ADDERALL XR [Suspect]
     Indication: ACCIDENTAL DRUG INTAKE BY CHILD
     Dosage: UNK, Unknown
     Route: 065
     Dates: start: 20111231
  2. IBUPROFEN [Concomitant]
     Indication: UPPER RESPIRATORY TRACT INFECTION
     Dosage: UNK, Unknown
     Route: 065
  3. VICKS VAPORUB [Concomitant]
     Indication: PRODUCT USED FOR UNKNOWN INDICATION
     Dosage: UNK, As req^d
     Route: 065

REACTIONS (2)
  - Choreoathetosis [Recovered/Resolved]
  - Accidental exposure to product by child [Recovered/Resolved]
